FAERS Safety Report 15321051 (Version 1)
Quarter: 2018Q3

REPORT INFORMATION
  Report Type: Spontaneous
  Country: US (occurrence: US)
  Receive Date: 20180821
  Receipt Date: 20180821
  Transmission Date: 20181010
  Serious: Yes (Hospitalization)
  Sender: FDA-Public Use
  Company Number: None

PATIENT
  Age: 68 Year
  Sex: Female

DRUGS (22)
  1. BAYER [Concomitant]
     Active Substance: ASPIRIN
  2. DOFETILIDE. [Concomitant]
     Active Substance: DOFETILIDE
  3. NOVOLOG [Concomitant]
     Active Substance: INSULIN ASPART
  4. HUMALOG [Concomitant]
     Active Substance: INSULIN LISPRO
  5. TORSEMIDE. [Concomitant]
     Active Substance: TORSEMIDE
  6. ADCIRCA [Suspect]
     Active Substance: TADALAFIL
     Indication: CARDIAC DISORDER
     Route: 048
     Dates: start: 20150515
  7. ACETAZOLAMID [Concomitant]
     Active Substance: ACETAZOLAMIDE
  8. ALLOPURINOL. [Concomitant]
     Active Substance: ALLOPURINOL
  9. WARFARIN [Concomitant]
     Active Substance: WARFARIN
  10. CALCITRIOL. [Concomitant]
     Active Substance: CALCITRIOL
  11. LANTUS [Concomitant]
     Active Substance: INSULIN GLARGINE
  12. DIURETIC [Concomitant]
     Active Substance: UNSPECIFIED INGREDIENT
  13. FLUOXETINE [Concomitant]
     Active Substance: FLUOXETINE HYDROCHLORIDE
  14. POT CL MICRO [Concomitant]
  15. SILDENAFIL. [Concomitant]
     Active Substance: SILDENAFIL
  16. ASPIRIN. [Concomitant]
     Active Substance: ASPIRIN
  17. CONTOUR [Concomitant]
  18. GABAPENTIN. [Concomitant]
     Active Substance: GABAPENTIN
  19. METOPROL SUC [Concomitant]
  20. ORENITRAM [Concomitant]
     Active Substance: TREPROSTINIL
  21. SIMVASTATIN. [Concomitant]
     Active Substance: SIMVASTATIN
  22. SPIRONOLACT [Concomitant]
     Active Substance: SPIRONOLACTONE

REACTIONS (1)
  - Drug ineffective [None]

NARRATIVE: CASE EVENT DATE: 20180801
